FAERS Safety Report 13244557 (Version 1)
Quarter: 2017Q1

REPORT INFORMATION
  Report Type: Spontaneous
  Country: US (occurrence: US)
  Receive Date: 20170216
  Receipt Date: 20170216
  Transmission Date: 20170428
  Serious: No
  Sender: FDA-Public Use
  Company Number: US-JAZZ-2017-US-000261

PATIENT
  Sex: Female
  Weight: 77.55 kg

DRUGS (18)
  1. XYREM [Suspect]
     Active Substance: SODIUM OXYBATE
     Indication: CHRONIC FATIGUE SYNDROME
     Dosage: 2.5G, BID
     Route: 048
     Dates: start: 201609, end: 2016
  2. XYREM [Suspect]
     Active Substance: SODIUM OXYBATE
     Dosage: 3 G, BID
     Route: 048
     Dates: start: 2016, end: 2016
  3. CLONAZEPAM. [Concomitant]
     Active Substance: CLONAZEPAM
  4. XYREM [Suspect]
     Active Substance: SODIUM OXYBATE
     Dosage: 2.25G, QD
     Route: 048
     Dates: start: 2016
  5. GABAPENTIN. [Concomitant]
     Active Substance: GABAPENTIN
  6. CYTOMEL [Concomitant]
     Active Substance: LIOTHYRONINE SODIUM
  7. AMPIGEN                            /00000502/ [Concomitant]
  8. PRAVASTATIN. [Concomitant]
     Active Substance: PRAVASTATIN
  9. PROPRANOLOL [Concomitant]
     Active Substance: PROPRANOLOL HYDROCHLORIDE
  10. PROMETRIUM [Concomitant]
     Active Substance: PROGESTERONE
  11. HORIZANT [Concomitant]
     Active Substance: GABAPENTIN ENACARBIL
  12. SYNTHROID [Concomitant]
     Active Substance: LEVOTHYROXINE SODIUM
  13. LEVOTHYROXINE. [Concomitant]
     Active Substance: LEVOTHYROXINE
  14. XYREM [Suspect]
     Active Substance: SODIUM OXYBATE
     Dosage: 2.75G, QD
     Route: 048
     Dates: start: 2016
  15. COVARYX HS [Concomitant]
     Active Substance: ESTROGENS, ESTERIFIED\METHYLTESTOSTERONE
  16. BUPROPION HCL [Concomitant]
     Active Substance: BUPROPION HYDROCHLORIDE
  17. MELATONIN [Concomitant]
     Active Substance: MELATONIN
  18. LUNESTA [Concomitant]
     Active Substance: ESZOPICLONE

REACTIONS (2)
  - Inflammation [Recovering/Resolving]
  - Intentional product use issue [Unknown]
